FAERS Safety Report 18290341 (Version 2)
Quarter: 2021Q3

REPORT INFORMATION
  Report Type: Spontaneous
  Country: US (occurrence: US)
  Receive Date: 20200921
  Receipt Date: 20210702
  Transmission Date: 20211014
  Serious: Yes (Other)
  Sender: FDA-Public Use
  Company Number: US-JNJFOC-20200921017

PATIENT
  Age: 4 Decade
  Sex: Female

DRUGS (12)
  1. MONTELUKAST SODIUM. [Concomitant]
     Active Substance: MONTELUKAST SODIUM
     Indication: SEASONAL ALLERGY
     Route: 065
  2. ELMIRON [Suspect]
     Active Substance: PENTOSAN POLYSULFATE SODIUM
     Dosage: DOSAGE FLUCTUATED
     Route: 048
     Dates: start: 2013, end: 2018
  3. PULMICORT FLEXHALER [Concomitant]
     Active Substance: BUDESONIDE
     Indication: SARCOIDOSIS
     Route: 065
     Dates: start: 2017
  4. PAROXETINE HYDROCHLORIDE. [Concomitant]
     Active Substance: PAROXETINE HYDROCHLORIDE
     Indication: ANXIETY
     Route: 065
     Dates: start: 2013
  5. ELMIRON [Suspect]
     Active Substance: PENTOSAN POLYSULFATE SODIUM
     Indication: CYSTITIS INTERSTITIAL
     Dosage: DOSAGE FLUCTUATED
     Route: 048
     Dates: start: 1997, end: 2010
  6. ELMIRON [Suspect]
     Active Substance: PENTOSAN POLYSULFATE SODIUM
     Route: 048
     Dates: start: 20171109, end: 201810
  7. METHOTREXATE. [Concomitant]
     Active Substance: METHOTREXATE
     Indication: SARCOIDOSIS
     Route: 065
     Dates: start: 2017
  8. FLUTICASONE PROPIONATE. [Concomitant]
     Active Substance: FLUTICASONE PROPIONATE
     Indication: SEASONAL ALLERGY
     Route: 045
  9. EZETIMIBE. [Concomitant]
     Active Substance: EZETIMIBE
     Indication: BLOOD CHOLESTEROL INCREASED
     Route: 065
     Dates: start: 2018
  10. FOLIC ACID. [Concomitant]
     Active Substance: FOLIC ACID
     Indication: SARCOIDOSIS
     Route: 065
     Dates: start: 2017
  11. VITAMIN D3 [Concomitant]
     Active Substance: CHOLECALCIFEROL
     Indication: IMMUNE DISORDER PROPHYLAXIS
  12. ELMIRON [Suspect]
     Active Substance: PENTOSAN POLYSULFATE SODIUM
     Dosage: DOSAGE FLUCTUATED
     Route: 048
     Dates: start: 2010, end: 2013

REACTIONS (3)
  - Inappropriate schedule of product administration [Unknown]
  - Off label use [Unknown]
  - Maculopathy [Unknown]

NARRATIVE: CASE EVENT DATE: 1997
